FAERS Safety Report 5764990-7 (Version None)
Quarter: 2008Q2

REPORT INFORMATION
  Report Type: 
  Country: None (occurrence: None)
  Receive Date: 20080611
  Receipt Date: 20080605
  Transmission Date: 20081010
  Serious: Yes (Hospitalization)
  Sender: FDA-Public Use
  Company Number: FR-BRISTOL-MYERS SQUIBB COMPANY-14216568

PATIENT
  Age: 89 Year
  Sex: Male

DRUGS (2)
  1. LOPRIL TABS 25 MG [Suspect]
     Indication: HYPERTENSION
     Route: 048
     Dates: end: 20080428
  2. LASILIX [Suspect]
     Indication: HYPERTENSION
     Route: 048

REACTIONS (2)
  - HYPERKALAEMIA [None]
  - RENAL FAILURE ACUTE [None]
